FAERS Safety Report 13526554 (Version 1)
Quarter: 2017Q2

REPORT INFORMATION
  Report Type: Spontaneous
  Country: FR (occurrence: FR)
  Receive Date: 20170509
  Receipt Date: 20170509
  Transmission Date: 20170830
  Serious: Yes (Hospitalization)
  Sender: FDA-Public Use
  Company Number: FR-ROCHE-1931880

PATIENT
  Age: 83 Year
  Sex: Female

DRUGS (3)
  1. LUCENTIS [Suspect]
     Active Substance: RANIBIZUMAB
     Indication: DRY AGE-RELATED MACULAR DEGENERATION
     Dosage: 3 INJECTION SUMMER
     Route: 065
     Dates: start: 2015
  2. LUCENTIS [Suspect]
     Active Substance: RANIBIZUMAB
     Dosage: 2 INJECTION
     Route: 065
     Dates: start: 201601
  3. LUCENTIS [Suspect]
     Active Substance: RANIBIZUMAB
     Dosage: ONE INJECTION
     Route: 065
     Dates: start: 201602

REACTIONS (1)
  - Peripheral artery thrombosis [Recovered/Resolved]

NARRATIVE: CASE EVENT DATE: 20170309
